FAERS Safety Report 6453459-2 (Version None)
Quarter: 2009Q4

REPORT INFORMATION
  Report Type: 
  Country: None (occurrence: None)
  Receive Date: 20091124
  Receipt Date: 20091112
  Transmission Date: 20100525
  Serious: Yes (Other)
  Sender: FDA-Public Use
  Company Number: US-ROCHE-669728

PATIENT
  Age: 71 Year
  Sex: Female
  Weight: 81.5 kg

DRUGS (8)
  1. CAPECITABINE [Suspect]
     Indication: COLORECTAL CANCER
     Dosage: 2000 MG, UNK
     Route: 065
     Dates: start: 20081017, end: 20081031
  2. CAPECITABINE [Suspect]
     Dosage: 2000 MG, UNK
     Route: 065
     Dates: start: 20081107, end: 20081121
  3. BEVACIZUMAB [Suspect]
     Indication: COLORECTAL CANCER
     Dosage: 648 MG, Q3W
     Route: 065
     Dates: start: 20081017, end: 20081017
  4. BEVACIZUMAB [Suspect]
     Dosage: 648 MG, Q3W
     Route: 065
     Dates: start: 20081017, end: 20081017
  5. BEVACIZUMAB [Suspect]
     Dosage: 648 MG, Q3W
     Route: 065
     Dates: start: 20081107, end: 20081107
  6. BEVACIZUMAB [Suspect]
     Dosage: 648 MG, Q3W
     Route: 065
     Dates: start: 20081107, end: 20081107
  7. LISINOPRIL [Concomitant]
     Indication: DRUG USE FOR UNKNOWN INDICATION
  8. FERROUS SULFATE TAB [Concomitant]
     Indication: DRUG USE FOR UNKNOWN INDICATION

REACTIONS (1)
  - ENTEROVESICAL FISTULA [None]
